FAERS Safety Report 25602833 (Version 1)
Quarter: 2025Q3

REPORT INFORMATION
  Report Type: Spontaneous
  Country: US (occurrence: US)
  Receive Date: 20250724
  Receipt Date: 20250724
  Transmission Date: 20251020
  Serious: Yes (Other)
  Sender: PFIZER
  Company Number: US-PFIZER INC-202500149465

PATIENT
  Age: 19 Year
  Sex: Female

DRUGS (4)
  1. LITFULO [Suspect]
     Active Substance: RITLECITINIB TOSYLATE
  2. ESTRADIOL [Concomitant]
     Active Substance: ESTRADIOL
  3. PROGESTERONE [Concomitant]
     Active Substance: PROGESTERONE
  4. MINOXIDIL [Concomitant]
     Active Substance: MINOXIDIL

REACTIONS (1)
  - Type 1 diabetes mellitus [Unknown]
